FAERS Safety Report 24341458 (Version 3)
Quarter: 2025Q2

REPORT INFORMATION
  Report Type: Report from Study
  Country: GB (occurrence: GB)
  Receive Date: 20240920
  Receipt Date: 20250520
  Transmission Date: 20250717
  Serious: Yes (Death)
  Sender: BOEHRINGER INGELHEIM
  Company Number: GB-BoehringerIngelheim-2024-BI-037610

PATIENT
  Age: 33 Year
  Sex: Female
  Weight: 67 kg

DRUGS (17)
  1. SPESOLIMAB [Suspect]
     Active Substance: SPESOLIMAB
     Indication: Psoriasis
     Dates: start: 20240618, end: 20240618
  2. SPESOLIMAB [Suspect]
     Active Substance: SPESOLIMAB
  3. LAMOTRIGINE [Concomitant]
     Active Substance: LAMOTRIGINE
     Indication: Product used for unknown indication
     Dates: start: 20050713, end: 20240914
  4. LEVETIRACETAM [Concomitant]
     Active Substance: LEVETIRACETAM
     Indication: Product used for unknown indication
     Dates: start: 20140207, end: 20240914
  5. PEPTAC [FAMOTIDINE] [Concomitant]
     Indication: Product used for unknown indication
     Dates: start: 20210414, end: 20240914
  6. OTOMIZE [Concomitant]
     Indication: Product used for unknown indication
     Dates: start: 20210414, end: 20240914
  7. LANSOPRAZOLE [Concomitant]
     Active Substance: LANSOPRAZOLE
     Indication: Product used for unknown indication
     Dates: start: 20211206, end: 20240914
  8. OMEPRAZOLE [Concomitant]
     Active Substance: OMEPRAZOLE
     Indication: Product used for unknown indication
     Dates: start: 20211214, end: 20240914
  9. CYCLIZINE [Concomitant]
     Active Substance: CYCLIZINE
     Indication: Product used for unknown indication
     Dates: start: 20220118, end: 20240914
  10. CLOBETASOL [Concomitant]
     Active Substance: CLOBETASOL
     Indication: Product used for unknown indication
     Dates: start: 20220512, end: 20240914
  11. CHLORPHENIRAMINE MALEATE [Concomitant]
     Active Substance: CHLORPHENIRAMINE MALEATE
     Indication: Product used for unknown indication
     Dates: start: 20230125, end: 20240914
  12. LACOSAMIDE [Concomitant]
     Active Substance: LACOSAMIDE
     Indication: Product used for unknown indication
     Dates: start: 20230724, end: 20240914
  13. CYCLOSPORINE [Concomitant]
     Active Substance: CYCLOSPORINE
     Indication: Product used for unknown indication
     Dates: start: 20240704, end: 20240914
  14. CYCLOSPORINE [Concomitant]
     Active Substance: CYCLOSPORINE
     Dates: start: 20230623, end: 20230623
  15. CYCLOSPORINE [Concomitant]
     Active Substance: CYCLOSPORINE
     Dates: start: 20230908, end: 20230921
  16. CYCLOSPORINE [Concomitant]
     Active Substance: CYCLOSPORINE
     Dates: start: 20231019, end: 20240125
  17. CYCLOSPORINE [Concomitant]
     Active Substance: CYCLOSPORINE
     Dates: start: 20240208, end: 20240617

REACTIONS (4)
  - Brain injury [Fatal]
  - Cardiac arrest [Fatal]
  - Epilepsy [Fatal]
  - Nausea [Unknown]

NARRATIVE: CASE EVENT DATE: 20240913
